FAERS Safety Report 25900964 (Version 1)
Quarter: 2025Q4

REPORT INFORMATION
  Report Type: Spontaneous
  Country: US (occurrence: US)
  Receive Date: 20251009
  Receipt Date: 20251009
  Transmission Date: 20260118
  Serious: Yes (Other)
  Sender: BAYER HEALTHCARE PHARMACEUTICALS INC.
  Company Number: US-BAYER-2025A132264

PATIENT
  Sex: Male

DRUGS (1)
  1. KOVALTRY [Suspect]
     Active Substance: ANTIHEMOPHILIC FACTOR, HUMAN RECOMBINANT
     Dosage: STRENGTH: 2179; INFUSED: 2,000 UNITS (+/- 10%) EVERY 12 HOURS

REACTIONS (3)
  - Pneumonitis [None]
  - Asthma [None]
  - Dyspnoea [None]
